FAERS Safety Report 8282135-9 (Version None)
Quarter: 2012Q2

REPORT INFORMATION
  Report Type: 
  Country: None (occurrence: None)
  Receive Date: 20120413
  Receipt Date: 20120410
  Transmission Date: 20120825
  Serious: Yes (Other)
  Sender: FDA-Public Use
  Company Number: US-BRISTOL-MYERS SQUIBB COMPANY-16417966

PATIENT
  Age: 63 Year
  Sex: Female

DRUGS (1)
  1. ORENCIA [Suspect]
     Indication: RHEUMATOID ARTHRITIS
     Dosage: DRUG INTERRUPTED AND RESTARTED
     Route: 042
     Dates: start: 20110707

REACTIONS (2)
  - LOWER LIMB FRACTURE [None]
  - ANKLE FRACTURE [None]
